FAERS Safety Report 7155881-8 (Version None)
Quarter: 2010Q4

REPORT INFORMATION
  Report Type: 
  Country: None (occurrence: None)
  Receive Date: 20101214
  Receipt Date: 20101203
  Transmission Date: 20110411
  Serious: Yes (Hospitalization)
  Sender: FDA-Public Use
  Company Number: US-JNJFOC-20101202938

PATIENT
  Sex: Female
  Weight: 58.1 kg

DRUGS (4)
  1. INFLIXIMAB, RECOMBINANT [Suspect]
     Indication: CROHN'S DISEASE
     Route: 042
  2. FENTANYL [Suspect]
     Indication: PAIN MANAGEMENT
  3. PREDNISONE [Concomitant]
  4. MULTI-VITAMINS [Concomitant]

REACTIONS (10)
  - ABDOMINAL PAIN [None]
  - BACK PAIN [None]
  - DRUG SCREEN POSITIVE [None]
  - ECZEMA [None]
  - HEADACHE [None]
  - NAUSEA [None]
  - PARAESTHESIA [None]
  - SINUSITIS [None]
  - VITAMIN A DEFICIENCY [None]
  - VOMITING [None]
